FAERS Safety Report 7935955-1 (Version None)
Quarter: 2011Q4

REPORT INFORMATION
  Report Type: 
  Country: None (occurrence: None)
  Receive Date: 20111123
  Receipt Date: 20111111
  Transmission Date: 20120403
  Serious: Yes (Other)
  Sender: FDA-Public Use
  Company Number: DE-JNJFOC-20111105336

PATIENT
  Age: 41 Year

DRUGS (2)
  1. RISPERDAL CONSTA [Suspect]
     Route: 030
     Dates: start: 20110501, end: 20111001
  2. RISPERDAL CONSTA [Suspect]
     Indication: PRODUCT USED FOR UNKNOWN INDICATION
     Route: 030
     Dates: start: 20050101, end: 20110501

REACTIONS (10)
  - TINNITUS [None]
  - HEADACHE [None]
  - NAUSEA [None]
  - INFLAMMATION [None]
  - GASTRIC DISORDER [None]
  - BACK PAIN [None]
  - PAIN IN EXTREMITY [None]
  - EAR DISCOMFORT [None]
  - GAIT DISTURBANCE [None]
  - SLEEP DISORDER [None]
